FAERS Safety Report 10232708 (Version 3)
Quarter: 2014Q2

REPORT INFORMATION
  Report Type: Spontaneous
  Country: SE (occurrence: SE)
  Receive Date: 20140612
  Receipt Date: 20140630
  Transmission Date: 20141212
  Serious: Yes (Other)
  Sender: FDA-Public Use
  Company Number: SE-AMGEN-CHESP2014037809

PATIENT
  Age: 83 Year
  Sex: Female

DRUGS (1)
  1. PROLIA [Suspect]
     Indication: OSTEOPOROSIS
     Dosage: UNK
     Route: 065
     Dates: start: 20140508

REACTIONS (5)
  - Spinal column stenosis [Unknown]
  - Blood pressure increased [Unknown]
  - Blood pressure fluctuation [Recovering/Resolving]
  - Chills [Unknown]
  - Hypersensitivity [Unknown]
